FAERS Safety Report 11132143 (Version 3)
Quarter: 2016Q1

REPORT INFORMATION
  Report Type: Spontaneous
  Country: US (occurrence: US)
  Receive Date: 20150522
  Receipt Date: 20160106
  Transmission Date: 20160525
  Serious: No
  Sender: FDA-Public Use
  Company Number: US-LUNDBECK-DKLU1111442

PATIENT
  Age: 25 Year
  Sex: Female

DRUGS (2)
  1. NORTHERA [Suspect]
     Active Substance: DROXIDOPA
     Indication: AUTONOMIC NEUROPATHY
     Route: 048
     Dates: start: 20150326
  2. NORTHERA [Suspect]
     Active Substance: DROXIDOPA
     Indication: NERVOUS SYSTEM DISORDER
     Route: 048
     Dates: start: 20150608

REACTIONS (3)
  - Sinusitis [Recovered/Resolved]
  - Cough [Recovering/Resolving]
  - Diarrhoea [Unknown]

NARRATIVE: CASE EVENT DATE: 201504
